FAERS Safety Report 11691171 (Version 1)
Quarter: 2015Q4

REPORT INFORMATION
  Report Type: Spontaneous
  Country: US (occurrence: US)
  Receive Date: 20151102
  Receipt Date: 20151102
  Transmission Date: 20160304
  Serious: No
  Sender: FDA-Public Use
  Company Number: US-BAYER-2015-458655

PATIENT
  Age: 90 Year
  Sex: Female
  Weight: 52.61 kg

DRUGS (7)
  1. TOPROL XL [Concomitant]
     Active Substance: METOPROLOL SUCCINATE
  2. PACERONE [Concomitant]
     Active Substance: AMIODARONE HYDROCHLORIDE
  3. LEVOXINE [Concomitant]
     Active Substance: LEVOTHYROXINE SODIUM
  4. MIRALAX [Suspect]
     Active Substance: POLYETHYLENE GLYCOL 3350
     Indication: CONSTIPATION
     Dosage: 0.5 DF, BID
     Route: 048
  5. WARFARIN [Concomitant]
     Active Substance: WARFARIN
  6. LISINOPRIL. [Concomitant]
     Active Substance: LISINOPRIL
  7. LANOXIN [Concomitant]
     Active Substance: DIGOXIN

REACTIONS (2)
  - Off label use [None]
  - Product use issue [None]
